FAERS Safety Report 4947606-9 (Version None)
Quarter: 2006Q1

REPORT INFORMATION
  Report Type: 
  Country: None (occurrence: None)
  Receive Date: 20060314
  Receipt Date: 20060301
  Transmission Date: 20060701
  Serious: Yes (Disabling)
  Sender: FDA-Public Use
  Company Number: 2006030445

PATIENT
  Age: 54 Year
  Sex: Female

DRUGS (1)
  1. ATORVASTATIN CALCIUM [Suspect]
     Indication: HYPERLIPIDAEMIA
     Dosage: (10 MG) ORAL
     Route: 048
     Dates: start: 20050825, end: 20051001

REACTIONS (3)
  - DISTURBANCE IN ATTENTION [None]
  - FEELING ABNORMAL [None]
  - MEMORY IMPAIRMENT [None]
